FAERS Safety Report 16040619 (Version 1)
Quarter: 2019Q2

REPORT INFORMATION
  Report Type: Spontaneous
  Country: US (occurrence: US)
  Receive Date: 20190305
  Receipt Date: 20190305
  Transmission Date: 20190711
  Serious: No
  Sender: FDA-Public Use
  Company Number: None

PATIENT
  Age: 60 Year
  Sex: Female
  Weight: 125.1 kg

DRUGS (1)
  1. TRULICITY [Suspect]
     Active Substance: DULAGLUTIDE
     Indication: TYPE 2 DIABETES MELLITUS
     Dosage: ?          QUANTITY:1 INJECTION(S);OTHER FREQUENCY:1 PER WEEK;?
     Route: 058
     Dates: start: 20190218, end: 20190303

REACTIONS (9)
  - Headache [None]
  - Dysgeusia [None]
  - Nausea [None]
  - Nasopharyngitis [None]
  - Abdominal pain upper [None]
  - Burning sensation [None]
  - Chills [None]
  - Lip swelling [None]
  - Malaise [None]

NARRATIVE: CASE EVENT DATE: 20190303
